FAERS Safety Report 17403063 (Version 1)
Quarter: 2020Q1

REPORT INFORMATION
  Report Type: Spontaneous
  Country: US (occurrence: US)
  Receive Date: 20200211
  Receipt Date: 20200211
  Transmission Date: 20200409
  Serious: No
  Sender: FDA-Public Use
  Company Number: US-PERRIGO-19US004532

PATIENT
  Age: 49 Year
  Sex: Female
  Weight: 53.97 kg

DRUGS (1)
  1. TRETINOIN. [Suspect]
     Active Substance: TRETINOIN
     Indication: SKIN WRINKLING
     Dosage: SMALL AMOUNT, QHS
     Route: 061
     Dates: start: 20190401

REACTIONS (3)
  - Application site exfoliation [Not Recovered/Not Resolved]
  - Off label use [Not Recovered/Not Resolved]
  - Expired product administered [Not Recovered/Not Resolved]

NARRATIVE: CASE EVENT DATE: 20190401
